FAERS Safety Report 4867527-X (Version None)
Quarter: 2005Q4

REPORT INFORMATION
  Report Type: 
  Country: None (occurrence: None)
  Receive Date: 20051222
  Receipt Date: 20051213
  Transmission Date: 20060501
  Serious: Yes (Hospitalization)
  Sender: FDA-Public Use
  Company Number: HQWYE681310MAR04

PATIENT
  Age: 7 Year
  Sex: Male
  Weight: 16 kg

DRUGS (7)
  1. RAPAMUNE [Suspect]
     Indication: PROPHYLAXIS AGAINST TRANSPLANT REJECTION
     Dosage: SEE IMAGE
     Route: 048
     Dates: end: 20040227
  2. RAPAMUNE [Suspect]
     Indication: PROPHYLAXIS AGAINST TRANSPLANT REJECTION
     Dosage: SEE IMAGE
     Route: 048
     Dates: start: 20030627
  3. PROGRAF [Concomitant]
  4. ZANTAC [Concomitant]
  5. FERROUS SULFATE TAB [Concomitant]
  6. LEVSIN (HYOSCYAMINE SULFATE) [Concomitant]
  7. NORVASC [Concomitant]

REACTIONS (6)
  - CAMPYLOBACTER INFECTION [None]
  - CULTURE STOOL POSITIVE [None]
  - GASTRITIS EROSIVE [None]
  - GASTROENTERITIS [None]
  - IMMUNOSUPPRESSION [None]
  - LYMPHOPROLIFERATIVE DISORDER [None]
